FAERS Safety Report 16714221 (Version 2)
Quarter: 2019Q3

REPORT INFORMATION
  Report Type: Spontaneous
  Country: US (occurrence: US)
  Receive Date: 20190819
  Receipt Date: 20190819
  Transmission Date: 20191004
  Serious: No
  Sender: FDA-Public Use
  Company Number: US-MALLINCKRODT-T201803899

PATIENT
  Sex: Male
  Weight: 66 kg

DRUGS (2)
  1. OXYCODONE/ACETAMINOPHEN [Suspect]
     Active Substance: ACETAMINOPHEN\OXYCODONE HYDROCHLORIDE
     Indication: PAIN
     Dosage: 5/325 MG, ONE TABLET EVERY 6 HOURS AS NEEDED
     Route: 048
  2. PLAVIX [Concomitant]
     Active Substance: CLOPIDOGREL BISULFATE
     Indication: PRODUCT USED FOR UNKNOWN INDICATION

REACTIONS (7)
  - Oral discomfort [Unknown]
  - Dizziness [Unknown]
  - Product taste abnormal [Unknown]
  - Contusion [Unknown]
  - Product odour abnormal [Unknown]
  - Abdominal discomfort [Unknown]
  - Headache [Unknown]
